FAERS Safety Report 4311154-X (Version None)
Quarter: 2004Q1

REPORT INFORMATION
  Report Type: 
  Country: None (occurrence: None)
  Receive Date: 20040302
  Receipt Date: 20040218
  Transmission Date: 20041129
  Serious: Yes (Hospitalization)
  Sender: FDA-Public Use
  Company Number: 200400633

PATIENT
  Age: 74 Year
  Sex: Male

DRUGS (9)
  1. IMODIUM [Suspect]
     Indication: DIARRHOEA
     Dosage: 1 MG QD PO
     Route: 048
     Dates: start: 20030715, end: 20030811
  2. IMODIUM [Suspect]
     Indication: GASTROINTESTINAL DISORDER
     Dosage: 1 MG QD PO
     Route: 048
     Dates: start: 20030715, end: 20030811
  3. TRIMEBUTINE MALEATE [Suspect]
     Indication: DIARRHOEA
     Dosage: 3 DOSES DAILY
     Dates: start: 20030723, end: 20030811
  4. URSODEOXYCHOLIC ACID [Concomitant]
  5. PROBUCOL (BIFIDOBACTERIUM) [Concomitant]
  6. ALBUMIN TARTRATE [Concomitant]
  7. ALUMINIUM SILICATE [Concomitant]
  8. DIGESTIVE ENZYME PREPARATION [Concomitant]
  9. GLYCYRON [Concomitant]

REACTIONS (4)
  - BACTERIAL INFECTION [None]
  - DRUG HYPERSENSITIVITY [None]
  - HEPATIC FUNCTION ABNORMAL [None]
  - HEPATITIS [None]
